FAERS Safety Report 5086151-X (Version None)
Quarter: 2006Q3

REPORT INFORMATION
  Report Type: 
  Country: None (occurrence: None)
  Receive Date: 20060818
  Receipt Date: 20060807
  Transmission Date: 20061208
  Serious: Yes (Life-Threatening)
  Sender: FDA-Public Use
  Company Number: 2006095783

PATIENT
  Age: 78 Year
  Sex: Male

DRUGS (2)
  1. ALDACTONE [Suspect]
     Indication: DRUG USE FOR UNKNOWN INDICATION
     Dosage: 100 MG (100 MG , 1 IN 1 D) ORAL
     Route: 048
     Dates: end: 20050714
  2. FUROSEMIDE [Suspect]
     Indication: DRUG USE FOR UNKNOWN INDICATION
     Dosage: 40 MG (40 MG, 1 IN 1 D) ORAL
     Route: 048
     Dates: end: 20050714

REACTIONS (2)
  - COMA HEPATIC [None]
  - HEPATIC ENCEPHALOPATHY [None]
